FAERS Safety Report 25048657 (Version 2)
Quarter: 2025Q2

REPORT INFORMATION
  Report Type: Report from Study
  Country: US (occurrence: US)
  Receive Date: 20250307
  Receipt Date: 20250415
  Transmission Date: 20250717
  Serious: Yes (Hospitalization)
  Sender: ABBVIE
  Company Number: US-ABBVIE-6166026

PATIENT
  Age: 53 Year
  Sex: Female

DRUGS (1)
  1. VYALEV [Suspect]
     Active Substance: FOSCARBIDOPA\FOSLEVODOPA
     Indication: Parkinson^s disease
     Route: 058
     Dates: start: 20250124

REACTIONS (3)
  - Hospitalisation [Not Recovered/Not Resolved]
  - Catheter site infection [Recovering/Resolving]
  - Catheter site nodule [Unknown]

NARRATIVE: CASE EVENT DATE: 20250101
